FAERS Safety Report 20598337 (Version 10)
Quarter: 2023Q1

REPORT INFORMATION
  Report Type: Report from Study
  Country: US (occurrence: US)
  Receive Date: 20220315
  Receipt Date: 20230116
  Transmission Date: 20230417
  Serious: Yes (Hospitalization, Other)
  Sender: FDA-Public Use
  Company Number: US-TAKEDA-2022TUS017046

PATIENT
  Sex: Male
  Weight: 78.017 kg

DRUGS (28)
  1. TEDUGLUTIDE [Suspect]
     Active Substance: TEDUGLUTIDE
     Indication: Malabsorption
     Dosage: 3.625 MILLIGRAM, QD
     Route: 058
     Dates: start: 202202
  2. TEDUGLUTIDE [Suspect]
     Active Substance: TEDUGLUTIDE
     Indication: Malabsorption
     Dosage: 3.625 MILLIGRAM, QD
     Route: 058
     Dates: start: 202202
  3. TEDUGLUTIDE [Suspect]
     Active Substance: TEDUGLUTIDE
     Indication: Malabsorption
     Dosage: 3.625 MILLIGRAM, QD
     Route: 058
     Dates: start: 202202
  4. TEDUGLUTIDE [Suspect]
     Active Substance: TEDUGLUTIDE
     Indication: Malabsorption
     Dosage: 3.625 MILLIGRAM, QD
     Route: 058
     Dates: start: 202202
  5. TEDUGLUTIDE [Suspect]
     Active Substance: TEDUGLUTIDE
     Indication: Crohn^s disease
     Dosage: 3.625 MILLIGRAM, QD
     Route: 058
     Dates: start: 202203
  6. TEDUGLUTIDE [Suspect]
     Active Substance: TEDUGLUTIDE
     Indication: Crohn^s disease
     Dosage: 3.625 MILLIGRAM, QD
     Route: 058
     Dates: start: 202203
  7. TEDUGLUTIDE [Suspect]
     Active Substance: TEDUGLUTIDE
     Indication: Crohn^s disease
     Dosage: 3.625 MILLIGRAM, QD
     Route: 058
     Dates: start: 202203
  8. TEDUGLUTIDE [Suspect]
     Active Substance: TEDUGLUTIDE
     Indication: Crohn^s disease
     Dosage: 3.625 MILLIGRAM, QD
     Route: 058
     Dates: start: 202203
  9. TEDUGLUTIDE [Suspect]
     Active Substance: TEDUGLUTIDE
     Indication: Short-bowel syndrome
     Dosage: 3.625 MILLIGRAM, QD
     Route: 058
     Dates: start: 20220307
  10. TEDUGLUTIDE [Suspect]
     Active Substance: TEDUGLUTIDE
     Indication: Short-bowel syndrome
     Dosage: 3.625 MILLIGRAM, QD
     Route: 058
     Dates: start: 20220307
  11. TEDUGLUTIDE [Suspect]
     Active Substance: TEDUGLUTIDE
     Indication: Short-bowel syndrome
     Dosage: 3.625 MILLIGRAM, QD
     Route: 058
     Dates: start: 20220307
  12. TEDUGLUTIDE [Suspect]
     Active Substance: TEDUGLUTIDE
     Indication: Short-bowel syndrome
     Dosage: 3.625 MILLIGRAM, QD
     Route: 058
     Dates: start: 20220307
  13. TEDUGLUTIDE [Suspect]
     Active Substance: TEDUGLUTIDE
     Dosage: 3.625 MILLIGRAM, QD
     Route: 058
     Dates: start: 20220308
  14. TEDUGLUTIDE [Suspect]
     Active Substance: TEDUGLUTIDE
     Dosage: 3.625 MILLIGRAM, QD
     Route: 058
     Dates: start: 20220308
  15. TEDUGLUTIDE [Suspect]
     Active Substance: TEDUGLUTIDE
     Dosage: 3.625 MILLIGRAM, QD
     Route: 058
     Dates: start: 20220308
  16. TEDUGLUTIDE [Suspect]
     Active Substance: TEDUGLUTIDE
     Dosage: 3.625 MILLIGRAM, QD
     Route: 058
     Dates: start: 20220308
  17. TEDUGLUTIDE [Suspect]
     Active Substance: TEDUGLUTIDE
     Dosage: 3.625 MILLIGRAM, QD
     Route: 058
     Dates: start: 20220310, end: 20220312
  18. TEDUGLUTIDE [Suspect]
     Active Substance: TEDUGLUTIDE
     Dosage: 3.625 MILLIGRAM, QD
     Route: 058
     Dates: start: 20220310, end: 20220312
  19. TEDUGLUTIDE [Suspect]
     Active Substance: TEDUGLUTIDE
     Dosage: 3.625 MILLIGRAM, QD
     Route: 058
     Dates: start: 20220310, end: 20220312
  20. TEDUGLUTIDE [Suspect]
     Active Substance: TEDUGLUTIDE
     Dosage: 3.625 MILLIGRAM, QD
     Route: 058
     Dates: start: 20220310, end: 20220312
  21. TEDUGLUTIDE [Suspect]
     Active Substance: TEDUGLUTIDE
     Dosage: 3.625 MILLIGRAM, QD
     Route: 058
     Dates: start: 20220330
  22. TEDUGLUTIDE [Suspect]
     Active Substance: TEDUGLUTIDE
     Dosage: 3.625 MILLIGRAM, QD
     Route: 058
     Dates: start: 20220330
  23. TEDUGLUTIDE [Suspect]
     Active Substance: TEDUGLUTIDE
     Dosage: 3.625 MILLIGRAM, QD
     Route: 058
     Dates: start: 20220330
  24. TEDUGLUTIDE [Suspect]
     Active Substance: TEDUGLUTIDE
     Dosage: 3.625 MILLIGRAM, QD
     Route: 058
     Dates: start: 20220330
  25. TEDUGLUTIDE [Suspect]
     Active Substance: TEDUGLUTIDE
     Dosage: 3.625 MILLIGRAM, QD
     Route: 058
     Dates: start: 20220421
  26. TEDUGLUTIDE [Suspect]
     Active Substance: TEDUGLUTIDE
     Dosage: 3.625 MILLIGRAM, QD
     Route: 058
     Dates: start: 20220421
  27. TEDUGLUTIDE [Suspect]
     Active Substance: TEDUGLUTIDE
     Dosage: 3.625 MILLIGRAM, QD
     Route: 058
     Dates: start: 20220421
  28. TEDUGLUTIDE [Suspect]
     Active Substance: TEDUGLUTIDE
     Dosage: 3.625 MILLIGRAM, QD
     Route: 058
     Dates: start: 20220421

REACTIONS (18)
  - Gastrointestinal stoma output increased [Not Recovered/Not Resolved]
  - Crohn^s disease [Unknown]
  - Obstruction [Recovering/Resolving]
  - Pain in extremity [Unknown]
  - Ill-defined disorder [Recovering/Resolving]
  - COVID-19 [Unknown]
  - Diarrhoea [Unknown]
  - Injection site mass [Unknown]
  - Injection site bruising [Unknown]
  - Weight increased [Unknown]
  - Frustration tolerance decreased [Unknown]
  - Ear congestion [Unknown]
  - Herpes zoster [Recovering/Resolving]
  - Vomiting [Recovered/Resolved]
  - Headache [Unknown]
  - Inappropriate schedule of product administration [Unknown]
  - Device connection issue [Unknown]
  - Product dose omission issue [Unknown]
